FAERS Safety Report 5663992-9 (Version None)
Quarter: 2008Q1

REPORT INFORMATION
  Report Type: 
  Country: None (occurrence: None)
  Receive Date: 20080314
  Receipt Date: 20080311
  Transmission Date: 20080703
  Serious: Yes (Other)
  Sender: FDA-Public Use
  Company Number: US-ALLERGAN-0802975US

PATIENT
  Sex: Female

DRUGS (2)
  1. BOTOX [Suspect]
     Indication: PELVIC PAIN
     Dosage: 50 UNITS, SINGLE
     Route: 030
     Dates: start: 20071101, end: 20071101
  2. BOTOX [Suspect]
     Dosage: 50 UNITS, SINGLE
     Route: 030

REACTIONS (2)
  - INTENTIONAL DRUG MISUSE [None]
  - MUSCLE ATROPHY [None]
